FAERS Safety Report 16088873 (Version 1)
Quarter: 2019Q1

REPORT INFORMATION
  Report Type: Spontaneous
  Country: US (occurrence: US)
  Receive Date: 20190319
  Receipt Date: 20190319
  Transmission Date: 20190418
  Serious: No
  Sender: FDA-Public Use
  Company Number: US-GLAXOSMITHKLINE-US2019GSK044877

PATIENT
  Sex: Female

DRUGS (1)
  1. NUCALA [Suspect]
     Active Substance: MEPOLIZUMAB
     Indication: PRODUCT USED FOR UNKNOWN INDICATION
     Dosage: UNK
     Dates: end: 201901

REACTIONS (5)
  - Throat irritation [Unknown]
  - Oropharyngeal pain [Unknown]
  - Malaise [Unknown]
  - Product dose omission [Unknown]
  - Upper-airway cough syndrome [Unknown]
